FAERS Safety Report 8279726-8 (Version None)
Quarter: 2012Q2

REPORT INFORMATION
  Report Type: 
  Country: None (occurrence: None)
  Receive Date: 20120412
  Receipt Date: 20111114
  Transmission Date: 20120825
  Serious: No
  Sender: FDA-Public Use
  Company Number: US-ASTRAZENECA-2011SE69487

PATIENT
  Sex: Female
  Weight: 66.2 kg

DRUGS (2)
  1. NEXIUM [Suspect]
     Route: 048
  2. OMEPRAZOLE [Suspect]
     Route: 048

REACTIONS (7)
  - GASTROOESOPHAGEAL REFLUX DISEASE [None]
  - HEPATIC ENZYME INCREASED [None]
  - ABDOMINAL PAIN [None]
  - LACTOSE INTOLERANCE [None]
  - GASTRODUODENITIS [None]
  - GASTRITIS [None]
  - ABDOMINAL PAIN UPPER [None]
